FAERS Safety Report 11045762 (Version 1)
Quarter: 2015Q2

REPORT INFORMATION
  Report Type: Spontaneous
  Country: US (occurrence: US)
  Receive Date: 20150417
  Receipt Date: 20150417
  Transmission Date: 20150821
  Serious: No
  Sender: FDA-Public Use
  Company Number: US-PFIZER INC-2015117380

PATIENT
  Age: 71 Year
  Sex: Female

DRUGS (2)
  1. TRIAMTERENE/ HCTZ [Concomitant]
     Indication: DIURETIC THERAPY
     Dosage: TRIAMTERENE 37.5 MG, HCTZ 25MG
  2. ADVIL [Suspect]
     Active Substance: IBUPROFEN
     Indication: TOOTHACHE
     Dosage: 3 DF, EVERY 8 HOURS
     Dates: start: 201503

REACTIONS (5)
  - Stress [Not Recovered/Not Resolved]
  - Pain in jaw [Not Recovered/Not Resolved]
  - Intentional product misuse [Unknown]
  - Headache [Not Recovered/Not Resolved]
  - Circumstance or information capable of leading to medication error [Unknown]
